FAERS Safety Report 9680114 (Version 2)
Quarter: 2014Q2

REPORT INFORMATION
  Report Type: Spontaneous
  Country: US (occurrence: US)
  Receive Date: 20131111
  Receipt Date: 20140507
  Transmission Date: 20141212
  Serious: Yes (Other)
  Sender: FDA-Public Use
  Company Number: US-AMGEN-USASP2013077848

PATIENT
  Age: 54 Year
  Sex: Female
  Weight: 58.05 kg

DRUGS (5)
  1. PROLIA [Suspect]
     Indication: OSTEOPOROSIS POSTMENOPAUSAL
     Dosage: 1 ML, Q6MO
     Route: 058
     Dates: start: 20120104, end: 20131104
  2. PROLIA [Suspect]
     Route: 058
  3. PROLIA [Suspect]
     Route: 058
  4. PROLIA [Suspect]
     Route: 058
  5. MIRENA [Concomitant]
     Indication: CONTRACEPTION
     Dosage: UNK
     Dates: start: 20120712

REACTIONS (2)
  - Osteonecrosis [Recovering/Resolving]
  - Osteonecrosis of jaw [Unknown]
